FAERS Safety Report 22723832 (Version 6)
Quarter: 2024Q4

REPORT INFORMATION
  Report Type: Report from Study
  Country: CN (occurrence: CN)
  Receive Date: 20230719
  Receipt Date: 20241017
  Transmission Date: 20250114
  Serious: Yes (Death, Life-Threatening, Hospitalization, Other)
  Sender: TAKEDA
  Company Number: CN-TAKEDA-2023TUS024206

PATIENT
  Age: 68 Year
  Sex: Female
  Weight: 50 kg

DRUGS (15)
  1. IXAZOMIB [Suspect]
     Active Substance: IXAZOMIB
     Indication: Plasma cell myeloma
     Dosage: 3 MILLIGRAM, 1/WEEK
     Route: 048
     Dates: start: 20221216, end: 20221226
  2. IXAZOMIB [Suspect]
     Active Substance: IXAZOMIB
     Dosage: 3 MILLIGRAM, 1/WEEK
     Route: 048
     Dates: start: 202302, end: 202307
  3. CALCIUM CARBONATE\CHOLECALCIFEROL [Concomitant]
     Active Substance: CALCIUM CARBONATE\CHOLECALCIFEROL
     Indication: Mineral supplementation
     Dosage: 600 MILLIGRAM, QD
     Route: 048
     Dates: start: 2021
  4. CALCITRIOL [Concomitant]
     Active Substance: CALCITRIOL
     Indication: Osteoporosis
     Dosage: 0.25 MICROGRAM, QD
     Route: 048
     Dates: start: 2021
  5. METHYLCOBALAMIN [Concomitant]
     Active Substance: METHYLCOBALAMIN
     Indication: Nerve injury
     Dosage: 0.5 MILLIGRAM, TID
     Route: 048
     Dates: start: 2021
  6. RIVAROXABAN [Concomitant]
     Active Substance: RIVAROXABAN
     Indication: Anticoagulant therapy
     Dosage: 10 MILLIGRAM, QD
     Route: 048
     Dates: start: 2022
  7. DEXAMETHASONE [Concomitant]
     Active Substance: DEXAMETHASONE
     Indication: Plasma cell myeloma
     Dosage: 0.75 MILLIGRAM, QD
     Route: 048
     Dates: start: 202209
  8. RABEPRAZOLE SODIUM [Concomitant]
     Active Substance: RABEPRAZOLE SODIUM
     Indication: Gastrointestinal disorder prophylaxis
     Dosage: 10 MILLIGRAM, QD
     Route: 048
     Dates: start: 2022
  9. PREGABALIN [Concomitant]
     Active Substance: PREGABALIN
     Indication: Nerve injury
     Dosage: 75 MILLIGRAM, BID
     Route: 048
     Dates: start: 2022
  10. AMITRIPTYLINE HYDROCHLORIDE [Concomitant]
     Active Substance: AMITRIPTYLINE HYDROCHLORIDE
     Indication: Sedation
     Dosage: 25 MILLIGRAM
     Route: 048
     Dates: start: 2022
  11. LENALIDOMIDE [Concomitant]
     Active Substance: LENALIDOMIDE
     Indication: Plasma cell myeloma
     Dosage: 25 MILLIGRAM, QD
     Route: 048
     Dates: start: 20220929
  12. ACYCLOVIR [Concomitant]
     Active Substance: ACYCLOVIR
     Indication: Antiviral prophylaxis
     Dosage: 0.2 GRAM, QD
     Route: 048
     Dates: start: 202210
  13. CLOPIDOGREL BISULFATE [Concomitant]
     Active Substance: CLOPIDOGREL BISULFATE
     Indication: Thrombosis prophylaxis
     Dosage: 25 MILLIGRAM, QD
     Route: 048
     Dates: start: 202210
  14. AZITHROMYCIN [Concomitant]
     Active Substance: AZITHROMYCIN
     Indication: Antibiotic prophylaxis
     Dosage: 0.1 GRAM, 1/WEEK
     Route: 048
     Dates: start: 20230131
  15. CEFDINIR [Concomitant]
     Active Substance: CEFDINIR
     Indication: Infection prophylaxis
     Dosage: 0.1 GRAM, TID
     Route: 048
     Dates: start: 20230131

REACTIONS (8)
  - Cardiac failure [Fatal]
  - Pneumonia [Fatal]
  - Renal failure [Fatal]
  - COVID-19 pneumonia [Recovered/Resolved]
  - White blood cell count decreased [Not Recovered/Not Resolved]
  - Neutrophil count decreased [Not Recovered/Not Resolved]
  - Platelet count decreased [Not Recovered/Not Resolved]
  - Off label use [Recovered/Resolved]

NARRATIVE: CASE EVENT DATE: 20221216
